FAERS Safety Report 15654119 (Version 1)
Quarter: 2018Q4

REPORT INFORMATION
  Report Type: Spontaneous
  Country: US (occurrence: US)
  Receive Date: 20181125
  Receipt Date: 20181125
  Transmission Date: 20190205
  Serious: Yes (Other)
  Sender: FDA-Public Use
  Company Number: None

PATIENT
  Age: 5 Year
  Sex: Female
  Weight: 14.7 kg

DRUGS (1)
  1. ABOBOTULINUMTOXINA [Suspect]
     Active Substance: ABOBOTULINUMTOXINA
     Indication: MUSCLE SPASTICITY
     Dosage: ?          OTHER FREQUENCY:ONCE;?
     Route: 030
     Dates: start: 20181016, end: 20181016

REACTIONS (4)
  - Asthenia [None]
  - Mastication disorder [None]
  - Dysphagia [None]
  - Movement disorder [None]

NARRATIVE: CASE EVENT DATE: 20181016
